FAERS Safety Report 16308491 (Version 1)
Quarter: 2019Q2

REPORT INFORMATION
  Report Type: Spontaneous
  Country: US (occurrence: US)
  Receive Date: 20190408
  Receipt Date: 20190408
  Transmission Date: 20190711
  Serious: No
  Sender: FDA-Public Use
  Company Number: None

PATIENT
  Age: 74 Year
  Sex: Male

DRUGS (1)
  1. ERLEADA [Suspect]
     Active Substance: APALUTAMIDE
     Route: 048
     Dates: start: 20180811

REACTIONS (4)
  - Headache [None]
  - Diarrhoea [None]
  - Tinnitus [None]
  - Impaired quality of life [None]

NARRATIVE: CASE EVENT DATE: 20190408
